FAERS Safety Report 8776730 (Version 3)
Quarter: 2012Q4

REPORT INFORMATION
  Report Type: 
  Country: JP (occurrence: JP)
  Receive Date: 20120910
  Receipt Date: 20120927
  Transmission Date: 20130627
  Serious: Yes (Hospitalization)
  Sender: FDA-Public Use
  Company Number: JP-PFIZER INC-2012220268

PATIENT
  Age: 84 Year
  Sex: Male

DRUGS (7)
  1. JZOLOFT [Suspect]
     Dosage: 25 mg, daily
     Route: 048
     Dates: start: 20100305, end: 20120905
  2. CRESTOR [Suspect]
     Dosage: 2.5 mg, daily
     Route: 048
     Dates: start: 20090718, end: 20120904
  3. PLETAAL OD [Concomitant]
     Dosage: 50 mg, daily
     Route: 048
  4. REBAMIPIDE [Concomitant]
     Dosage: 100 mg, daily
     Route: 048
  5. TENORMIN [Concomitant]
     Dosage: 12.5 mg, daily
  6. SEDIEL [Concomitant]
     Dosage: 10 mg, daily
     Route: 048
  7. PLAVIX [Concomitant]
     Dosage: 25 mg, daily
     Route: 048

REACTIONS (2)
  - Blood creatine phosphokinase increased [Recovered/Resolved]
  - Malaise [Recovered/Resolved]
